FAERS Safety Report 21211960 (Version 1)
Quarter: 2022Q3

REPORT INFORMATION
  Report Type: Spontaneous
  Country: US (occurrence: US)
  Receive Date: 20220815
  Receipt Date: 20220815
  Transmission Date: 20221027
  Serious: Yes (Other)
  Sender: FDA-Public Use
  Company Number: US-PFIZER INC-PV202200035839

PATIENT
  Age: 47 Year
  Sex: Female

DRUGS (2)
  1. SOLU-MEDROL [Suspect]
     Active Substance: METHYLPREDNISOLONE SODIUM SUCCINATE
     Indication: Optic ischaemic neuropathy
     Dosage: 250 MG, EVERY 6 HRS FOR 3 DAYS
     Route: 042
  2. PREDNISONE ACETATE [Concomitant]
     Active Substance: PREDNISONE ACETATE
     Indication: Optic ischaemic neuropathy
     Dosage: UNK, 14 DAYS

REACTIONS (3)
  - Optic atrophy [Unknown]
  - Off label use [Unknown]
  - Drug ineffective for unapproved indication [Unknown]
